FAERS Safety Report 9639532 (Version 4)
Quarter: 2013Q4

REPORT INFORMATION
  Report Type: Report from Study
  Country: GB (occurrence: GB)
  Receive Date: 20131023
  Receipt Date: 20131121
  Transmission Date: 20140711
  Serious: Yes (Other)
  Sender: FDA-Public Use
  Company Number: GB-AMGEN-GBRCT2013073396

PATIENT
  Age: 55 Year
  Sex: Male

DRUGS (2)
  1. DENOSUMAB [Suspect]
     Indication: BONE GIANT CELL TUMOUR
     Dosage: 120 MG, QMO
     Route: 058
     Dates: start: 20101009
  2. VITAMIN D                          /00107901/ [Concomitant]
     Dosage: UNK UNK, QD
     Route: 048
     Dates: start: 20121209

REACTIONS (1)
  - Exposed bone in jaw [Unknown]
